FAERS Safety Report 18665831 (Version 3)
Quarter: 2021Q1

REPORT INFORMATION
  Report Type: Spontaneous
  Country: JP (occurrence: JP)
  Receive Date: 20201226
  Receipt Date: 20210224
  Transmission Date: 20210419
  Serious: Yes (Death, Hospitalization, Other)
  Sender: FDA-Public Use
  Company Number: JP-UNITED THERAPEUTICS-UNT-2019-009223

PATIENT
  Age: 46 Year
  Sex: Female

DRUGS (11)
  1. REMODULIN [Suspect]
     Active Substance: TREPROSTINIL
     Indication: PULMONARY ARTERIAL HYPERTENSION
     Dosage: UNK, CONTINUING
     Route: 058
     Dates: start: 20190518
  2. TADALAFIL. [Concomitant]
     Active Substance: TADALAFIL
     Indication: PULMONARY ARTERIAL HYPERTENSION
     Dosage: 40 MG, QD
     Route: 048
  3. REMODULIN [Suspect]
     Active Substance: TREPROSTINIL
     Indication: COLLAGEN DISORDER
     Dosage: UNK UNK, CONTINUING (REDUCED DOSE)
     Route: 058
     Dates: start: 202001
  4. REMODULIN [Suspect]
     Active Substance: TREPROSTINIL
     Dosage: 0.041 ?G/KG, CONTINUING
     Route: 058
     Dates: start: 202102
  5. MACITENTAN [Concomitant]
     Active Substance: MACITENTAN
     Indication: PULMONARY ARTERIAL HYPERTENSION
     Dosage: 5 MG, QD
     Route: 048
  6. MACITENTAN [Concomitant]
     Active Substance: MACITENTAN
     Indication: COLLAGEN DISORDER
  7. MACITENTAN [Concomitant]
     Active Substance: MACITENTAN
     Indication: COLLAGEN DISORDER
  8. TADALAFIL. [Concomitant]
     Active Substance: TADALAFIL
     Indication: COLLAGEN DISORDER
  9. SELEXIPAG [Concomitant]
     Active Substance: SELEXIPAG
     Indication: COLLAGEN DISORDER
  10. SELEXIPAG [Concomitant]
     Active Substance: SELEXIPAG
     Indication: PULMONARY ARTERIAL HYPERTENSION
     Dosage: 3.2 MG, QD
     Route: 048
  11. MACITENTAN [Concomitant]
     Active Substance: MACITENTAN
     Indication: PULMONARY ARTERIAL HYPERTENSION
     Dosage: 10 MG, QD
     Route: 048

REACTIONS (12)
  - Injection site pain [Unknown]
  - Leg amputation [Unknown]
  - Condition aggravated [Unknown]
  - Sepsis [Fatal]
  - Injection site erythema [Unknown]
  - Septic shock [Fatal]
  - Injection site swelling [Unknown]
  - Hepatic cirrhosis [Unknown]
  - Injection site warmth [Unknown]
  - Blood pressure decreased [Fatal]
  - Dermatitis allergic [Unknown]
  - Scleroderma [Unknown]

NARRATIVE: CASE EVENT DATE: 2019
